FAERS Safety Report 5730527-1 (Version None)
Quarter: 2008Q2

REPORT INFORMATION
  Report Type: 
  Country: None (occurrence: None)
  Receive Date: 20080507
  Receipt Date: 20080506
  Transmission Date: 20081010
  Serious: Yes (Hospitalization)
  Sender: FDA-Public Use
  Company Number: A0726458A

PATIENT
  Age: 46 Year
  Sex: Female

DRUGS (3)
  1. ALLI [Suspect]
     Indication: WEIGHT LOSS DIET
  2. METFORMIN HCL [Concomitant]
  3. LABETALOL HCL [Concomitant]
     Route: 062

REACTIONS (8)
  - ABDOMINAL PAIN [None]
  - ASTHENIA [None]
  - DIARRHOEA [None]
  - FREQUENT BOWEL MOVEMENTS [None]
  - GASTROINTESTINAL INFECTION [None]
  - MUSCLE SPASMS [None]
  - RECTAL DISCHARGE [None]
  - VOMITING [None]
